FAERS Safety Report 14543297 (Version 1)
Quarter: 2018Q1

REPORT INFORMATION
  Report Type: Spontaneous
  Country: US (occurrence: US)
  Receive Date: 20180216
  Receipt Date: 20180216
  Transmission Date: 20180509
  Serious: No
  Sender: FDA-Public Use
  Company Number: US-LANTHEUS-LMI-2017-00609

PATIENT
  Age: 25 Year
  Sex: Female
  Weight: 63 kg

DRUGS (2)
  1. DEFINITY [Suspect]
     Active Substance: PERFLUTREN
     Indication: ECHOCARDIOGRAM
     Dosage: 8 ML (2 ML DEFINITY PREPARED IN 10 ML NS)
     Route: 040
     Dates: start: 20171122, end: 20171122
  2. DEFINITY [Suspect]
     Active Substance: PERFLUTREN
     Indication: STRESS ECHOCARDIOGRAM

REACTIONS (3)
  - Swelling face [Not Recovered/Not Resolved]
  - Flushing [Not Recovered/Not Resolved]
  - Dysphagia [Not Recovered/Not Resolved]

NARRATIVE: CASE EVENT DATE: 20171122
